FAERS Safety Report 8876525 (Version 6)
Quarter: 2013Q1

REPORT INFORMATION
  Report Type: Spontaneous
  Country: DE (occurrence: DE)
  Receive Date: 20121030
  Receipt Date: 20130129
  Transmission Date: 20140127
  Serious: Yes (Life-Threatening, Hospitalization)
  Sender: FDA-Public Use
  Company Number: DE-BAXTER-2012BAX020601

PATIENT
  Age: 38 Year
  Sex: Female
  Weight: 69 kg

DRUGS (9)
  1. KIOVIG [Suspect]
     Indication: INFECTION
     Route: 042
     Dates: start: 20121018, end: 20121018
  2. KIOVIG [Suspect]
     Indication: SELECTIVE IGA IMMUNODEFICIENCY
     Route: 042
     Dates: start: 20121018, end: 20121018
  3. KIOVIG [Suspect]
     Indication: BLOOD IMMUNOGLOBULIN G DECREASED
  4. TREDAPTIVE [Concomitant]
     Indication: PRODUCT USED FOR UNKNOWN INDICATION
  5. SULFASALAZINE [Concomitant]
     Indication: IMMUNOSUPPRESSION
  6. L-THYROXINE [Concomitant]
     Indication: PRODUCT USED FOR UNKNOWN INDICATION
  7. ACETYLSALICYLIC ACID [Concomitant]
     Indication: PRODUCT USED FOR UNKNOWN INDICATION
  8. OPIPRAMOL [Concomitant]
     Indication: PRODUCT USED FOR UNKNOWN INDICATION
  9. AZATHIOPRIN [Concomitant]
     Indication: IMMUNOSUPPRESSION
     Dates: start: 2005, end: 2005

REACTIONS (15)
  - Dyspnoea [Recovered/Resolved]
  - Respiratory distress [Recovered/Resolved]
  - Cardiovascular disorder [Recovering/Resolving]
  - Peripheral circulatory failure [Recovering/Resolving]
  - Feeling cold [Recovered/Resolved]
  - Headache [Recovering/Resolving]
  - Body temperature increased [Recovering/Resolving]
  - Chills [Recovering/Resolving]
  - Chills [Recovered/Resolved with Sequelae]
  - Pain in extremity [Recovering/Resolving]
  - Pyrexia [Recovering/Resolving]
  - Arrhythmia [Recovering/Resolving]
  - Fatigue [Recovering/Resolving]
  - Fatigue [Recovering/Resolving]
  - Arthralgia [Not Recovered/Not Resolved]
